FAERS Safety Report 8962802 (Version 4)
Quarter: 2013Q2

REPORT INFORMATION
  Report Type: Spontaneous
  Country: US (occurrence: US)
  Receive Date: 20121214
  Receipt Date: 20130405
  Transmission Date: 20140414
  Serious: Yes (Hospitalization, Other)
  Sender: FDA-Public Use
  Company Number: US-PFIZER INC-2012312969

PATIENT
  Age: 33 Year
  Sex: Male
  Weight: 68.03 kg

DRUGS (6)
  1. ATENOLOL [Concomitant]
     Dosage: 15 MG, 1X/DAY
  2. LISINOPRIL [Concomitant]
     Dosage: 5 MG, UNK
     Route: 048
  3. FUROSEMIDE [Concomitant]
     Dosage: 20 MG, 1X/DAY
     Route: 048
  4. REVATIO [Suspect]
     Indication: CARDIOVASCULAR DISORDER
     Dosage: 20 MG, 3X/DAY
     Route: 048
     Dates: start: 201203, end: 2012
  5. REVATIO [Suspect]
     Dosage: 40 MG, 3X/DAY
     Route: 048
     Dates: start: 20121101, end: 201212
  6. DIGOXIN [Concomitant]
     Dosage: 0.25 MG, UNK

REACTIONS (19)
  - Urinary tract infection [Unknown]
  - Pneumonia [Unknown]
  - Off label use [Recovered/Resolved]
  - Hallucination, visual [Recovered/Resolved]
  - Coordination abnormal [Recovered/Resolved]
  - Hypotension [Unknown]
  - Psychotic disorder [Unknown]
  - Decreased interest [Unknown]
  - Abnormal behaviour [Recovered/Resolved]
  - Hypersomnia [Recovered/Resolved]
  - Depression [Recovered/Resolved]
  - Euphoric mood [Recovered/Resolved]
  - Eye disorder [Recovered/Resolved]
  - Muscle twitching [Recovered/Resolved]
  - Weight decreased [Unknown]
  - Sleep disorder [Unknown]
  - Off label use [Recovered/Resolved]
  - Anger [Unknown]
  - Drug ineffective [Unknown]
